FAERS Safety Report 9667671 (Version 3)
Quarter: 2013Q4

REPORT INFORMATION
  Report Type: Spontaneous
  Country: US (occurrence: US)
  Receive Date: 20131101
  Receipt Date: 20131119
  Transmission Date: 20140711
  Serious: No
  Sender: FDA-Public Use
  Company Number: US-ORACLE-2011S1000088

PATIENT
  Sex: 0

DRUGS (1)
  1. KRYSTEXXA INJECTION [Suspect]
     Indication: GOUT

REACTIONS (1)
  - Musculoskeletal stiffness [Unknown]
